FAERS Safety Report 7799966-1 (Version None)
Quarter: 2011Q4

REPORT INFORMATION
  Report Type: 
  Country: None (occurrence: None)
  Receive Date: 20111006
  Receipt Date: 20111004
  Transmission Date: 20120403
  Serious: Yes (Hospitalization, Other)
  Sender: FDA-Public Use
  Company Number: FR-ABBOTT-11P-056-0850467-00

PATIENT
  Age: 76 Year
  Sex: Female
  Weight: 70 kg

DRUGS (1)
  1. HUMIRA [Suspect]
     Indication: RHEUMATOID ARTHRITIS
     Route: 058
     Dates: start: 20090101, end: 20110830

REACTIONS (7)
  - OEDEMA GENITAL [None]
  - PRURITUS [None]
  - RASH [None]
  - PURPURA [None]
  - DYSPHAGIA [None]
  - SWELLING FACE [None]
  - LIP SWELLING [None]
